FAERS Safety Report 5410457-5 (Version None)
Quarter: 2007Q3

REPORT INFORMATION
  Report Type: 
  Country: None (occurrence: None)
  Receive Date: 20070810
  Receipt Date: 20061218
  Transmission Date: 20080115
  Serious: No
  Sender: FDA-Public Use
  Company Number: A0631990A

PATIENT

DRUGS (5)
  1. PAXIL [Suspect]
     Indication: DRUG USE FOR UNKNOWN INDICATION
     Dosage: 20MG UNKNOWN
     Route: 048
  2. GABAPENTIN [Concomitant]
  3. EFFEXOR [Concomitant]
  4. TRAZODONE HCL [Concomitant]
  5. UNSPECIFIED MEDICATIONS [Concomitant]

REACTIONS (1)
  - DRUG INEFFECTIVE [None]
